FAERS Safety Report 23323191 (Version 1)
Quarter: 2023Q4

REPORT INFORMATION
  Report Type: Spontaneous
  Country: US (occurrence: None)
  Receive Date: 20231220
  Receipt Date: 20231220
  Transmission Date: 20240109
  Serious: No
  Sender: FDA-Public Use
  Company Number: US-ROCHE-3294857

PATIENT
  Sex: Male

DRUGS (17)
  1. RITUXIMAB [Suspect]
     Active Substance: RITUXIMAB
     Indication: Diffuse large B-cell lymphoma
     Route: 065
     Dates: start: 20210122, end: 20210606
  2. RITUXIMAB [Suspect]
     Active Substance: RITUXIMAB
     Route: 065
     Dates: start: 20210614, end: 20210630
  3. RITUXIMAB [Suspect]
     Active Substance: RITUXIMAB
     Route: 065
     Dates: start: 20220524, end: 20220930
  4. CYCLOPHOSPHAMIDE [Suspect]
     Active Substance: CYCLOPHOSPHAMIDE
     Indication: Diffuse large B-cell lymphoma
     Route: 065
     Dates: start: 20210122, end: 20210606
  5. CYCLOPHOSPHAMIDE [Suspect]
     Active Substance: CYCLOPHOSPHAMIDE
     Route: 065
     Dates: start: 20220524, end: 20220930
  6. DOXORUBICIN HYDROCHLORIDE [Suspect]
     Active Substance: DOXORUBICIN HYDROCHLORIDE
     Indication: Diffuse large B-cell lymphoma
     Route: 065
     Dates: start: 20210122, end: 20210606
  7. PREDNISONE [Suspect]
     Active Substance: PREDNISONE
     Indication: Diffuse large B-cell lymphoma
     Route: 065
     Dates: start: 20210122, end: 20210606
  8. VINCRISTINE SULFATE [Suspect]
     Active Substance: VINCRISTINE SULFATE
     Indication: Diffuse large B-cell lymphoma
     Route: 065
     Dates: start: 20210122, end: 20210606
  9. CARBOPLATIN [Suspect]
     Active Substance: CARBOPLATIN
     Indication: Diffuse large B-cell lymphoma
     Route: 065
     Dates: start: 20210614, end: 20210630
  10. ETOPOSIDE [Suspect]
     Active Substance: ETOPOSIDE
     Indication: Diffuse large B-cell lymphoma
     Route: 065
     Dates: start: 20210614, end: 20210630
  11. IFOSFAMIDE [Suspect]
     Active Substance: IFOSFAMIDE
     Indication: Diffuse large B-cell lymphoma
     Route: 065
     Dates: start: 20210614, end: 20210630
  12. IBRUTINIB [Suspect]
     Active Substance: IBRUTINIB
     Indication: Diffuse large B-cell lymphoma
     Route: 065
     Dates: start: 20210723, end: 20210901
  13. PEMBROLIZUMAB [Suspect]
     Active Substance: PEMBROLIZUMAB
     Indication: Diffuse large B-cell lymphoma
     Route: 065
     Dates: start: 20220131, end: 20220306
  14. ADRIAMYCIN [Suspect]
     Active Substance: DOXORUBICIN HYDROCHLORIDE
     Indication: Diffuse large B-cell lymphoma
     Route: 065
     Dates: start: 20220524, end: 20220930
  15. DEXAMETHASONE [Suspect]
     Active Substance: DEXAMETHASONE
     Indication: Diffuse large B-cell lymphoma
     Route: 065
     Dates: start: 20220524, end: 20220930
  16. VINCRISTINE [Suspect]
     Active Substance: VINCRISTINE
     Indication: Diffuse large B-cell lymphoma
     Route: 065
     Dates: start: 20220524, end: 20220930
  17. CYTOXAN [Suspect]
     Active Substance: CYCLOPHOSPHAMIDE
     Indication: Diffuse large B-cell lymphoma
     Route: 065
     Dates: start: 20230125, end: 20230212

REACTIONS (2)
  - Disease progression [Unknown]
  - Off label use [Unknown]
